FAERS Safety Report 8067130-7 (Version None)
Quarter: 2012Q1

REPORT INFORMATION
  Report Type: 
  Country: None (occurrence: None)
  Receive Date: 20120124
  Receipt Date: 20120109
  Transmission Date: 20120608
  Serious: Yes (Hospitalization, Other)
  Sender: FDA-Public Use
  Company Number: US-WATSON-2011-22909

PATIENT
  Age: 34 Year
  Sex: Female

DRUGS (2)
  1. ERYTHROMYCIN [Suspect]
     Indication: STAPHYLOCOCCAL BACTERAEMIA
     Dosage: 4 G, DAILY (1 G Q6HR)
     Route: 048
  2. ERYTHROMYCIN [Suspect]
     Dosage: UNK
     Route: 042

REACTIONS (2)
  - OTOTOXICITY [None]
  - RENAL IMPAIRMENT [None]
